FAERS Safety Report 8012576-6 (Version None)
Quarter: 2011Q4

REPORT INFORMATION
  Report Type: 
  Country: None (occurrence: None)
  Receive Date: 20111229
  Receipt Date: 20111215
  Transmission Date: 20120403
  Serious: Yes (Hospitalization, Other)
  Sender: FDA-Public Use
  Company Number: ES-RANBAXY-2011RR-51288

PATIENT
  Age: 35 Year
  Sex: Male

DRUGS (8)
  1. PIROXICAM [Suspect]
     Indication: DRUG HYPERSENSITIVITY
     Dosage: 10 MG, UNK
     Route: 048
  2. PIROXICAM [Suspect]
     Dosage: 20 MG, UNK
     Route: 048
  3. ETORICOXIB [Concomitant]
     Indication: DRUG HYPERSENSITIVITY
     Dosage: UNK
     Route: 048
  4. LORATADINE [Suspect]
     Dosage: 10 MG, UNK
     Route: 048
  5. FEXOFENADINE [Concomitant]
     Indication: DRUG HYPERSENSITIVITY
     Dosage: UNK
     Route: 065
  6. CETIRIZINE [Suspect]
     Indication: PRODUCT USED FOR UNKNOWN INDICATION
     Dosage: UNK
     Route: 048
  7. ACETAMINOPHEN [Concomitant]
     Indication: DRUG HYPERSENSITIVITY
     Dosage: UNK
     Route: 048
  8. LORATADINE [Suspect]
     Indication: DRUG HYPERSENSITIVITY
     Dosage: 5 MG, UNK
     Route: 048

REACTIONS (2)
  - ANGIOEDEMA [None]
  - URTICARIA [None]
